FAERS Safety Report 24891155 (Version 1)
Quarter: 2025Q1

REPORT INFORMATION
  Report Type: Spontaneous
  Country: US (occurrence: US)
  Receive Date: 20250127
  Receipt Date: 20250127
  Transmission Date: 20250408
  Serious: No
  Sender: SANOFI AVENTIS
  Company Number: US-SA-2025SA022036

PATIENT
  Age: 66 Year
  Sex: Female

DRUGS (1)
  1. DUPIXENT [Suspect]
     Active Substance: DUPILUMAB
     Indication: Asthma
     Dosage: 300 MG, QOW
     Route: 058
     Dates: start: 20241011

REACTIONS (6)
  - Fatigue [Unknown]
  - Hunger [Unknown]
  - Sinus disorder [Unknown]
  - Upper-airway cough syndrome [Unknown]
  - Injection site pain [Unknown]
  - Injection site erythema [Unknown]
